FAERS Safety Report 4677733-5 (Version None)
Quarter: 2005Q2

REPORT INFORMATION
  Report Type: 
  Country: None (occurrence: None)
  Receive Date: 20050531
  Receipt Date: 20050526
  Transmission Date: 20051028
  Serious: Yes (Hospitalization, Other)
  Sender: FDA-Public Use
  Company Number: PHNU2005DE02080

PATIENT
  Age: 17 Year
  Sex: Male
  Weight: 80 kg

DRUGS (2)
  1. TRILEPTAL [Suspect]
     Indication: EPILEPSY
     Dosage: 900 MG, BID
     Route: 048
     Dates: start: 20020101
  2. TRILEPTAL [Suspect]
     Dosage: 15X300MG/ONCE SINGLE
     Route: 048
     Dates: start: 20050501

REACTIONS (5)
  - FATIGUE [None]
  - SOPOR [None]
  - SUICIDAL IDEATION [None]
  - SUICIDE ATTEMPT [None]
  - VOMITING [None]
